FAERS Safety Report 13674137 (Version 2)
Quarter: 2017Q3

REPORT INFORMATION
  Report Type: Report from Study
  Country: US (occurrence: US)
  Receive Date: 20170621
  Receipt Date: 20170817
  Transmission Date: 20171127
  Serious: Yes (Other)
  Sender: FDA-Public Use
  Company Number: US-AMGEN-USASL2017085101

PATIENT
  Age: 66 Year
  Sex: Male
  Weight: 97.52 kg

DRUGS (15)
  1. DIOVAN [Concomitant]
     Active Substance: VALSARTAN
     Dosage: UNK UNK, QD 90 DAYS
     Dates: start: 20161017
  2. VOLTAREN [Concomitant]
     Active Substance: DICLOFENAC SODIUM
     Dosage: UNK UNK, BID 30 DAYS
     Dates: start: 20160111
  3. ALLOPURINOL. [Concomitant]
     Active Substance: ALLOPURINOL
     Dosage: UNK, 90 DAYS
     Dates: start: 20170608
  4. ZOLOFT [Concomitant]
     Active Substance: SERTRALINE HYDROCHLORIDE
     Dosage: UNK, 90 DAYS
     Dates: start: 20170601
  5. MOBIC [Concomitant]
     Active Substance: MELOXICAM
     Dosage: UNK UNK, BID 30 DAYS
     Dates: start: 20161101
  6. CYCLOBENZAPRINE. [Concomitant]
     Active Substance: CYCLOBENZAPRINE
     Dosage: UNK UNK, TID 30 DAYS
     Dates: start: 20161101
  7. TRAMADOL. [Concomitant]
     Active Substance: TRAMADOL
     Dosage: UNK UNK, BID 90 DAYS
     Dates: start: 20160518
  8. REPATHA [Suspect]
     Active Substance: EVOLOCUMAB
     Indication: HYPERLIPIDAEMIA
     Dosage: 140 MG/ML, Q2WK
     Route: 030
     Dates: start: 20170522
  9. ASPIRIN. [Concomitant]
     Active Substance: ASPIRIN
     Dosage: UNK UNK, QD
     Dates: start: 20161107
  10. REPATHA [Suspect]
     Active Substance: EVOLOCUMAB
     Indication: HYPERCHOLESTEROLAEMIA
  11. FLAXSEED [Concomitant]
     Active Substance: FLAX SEED
     Dosage: UNK UNK, QD
     Dates: start: 20161107
  12. ZITHROMAX [Concomitant]
     Active Substance: AZITHROMYCIN DIHYDRATE
     Dosage: UNK UNK, QD 5 DAYS
     Dates: start: 20170522
  13. PNEUMOVAX 23 [Concomitant]
     Active Substance: PNEUMOCOCCAL VACCINE, POLYVALENT 23
     Dosage: UNK UNK, QD 30 DAYS
     Dates: start: 20160512
  14. NITROSTAT [Concomitant]
     Active Substance: NITROGLYCERIN
     Dosage: UNK UNK, QD
     Dates: start: 20161107
  15. METOPROLOL SUCCINATE. [Concomitant]
     Active Substance: METOPROLOL SUCCINATE
     Dosage: UNK 90 DAYS
     Dates: start: 20170608

REACTIONS (5)
  - Dry skin [Recovered/Resolved]
  - Pruritus generalised [Not Recovered/Not Resolved]
  - Headache [Unknown]
  - Nasal pruritus [Not Recovered/Not Resolved]
  - Sneezing [Recovered/Resolved]

NARRATIVE: CASE EVENT DATE: 2017
